FAERS Safety Report 19724875 (Version 16)
Quarter: 2024Q4

REPORT INFORMATION
  Report Type: Report from Study
  Country: US (occurrence: US)
  Receive Date: 20210819
  Receipt Date: 20241125
  Transmission Date: 20250115
  Serious: Yes (Hospitalization, Other)
  Sender: TAKEDA
  Company Number: US-SHIRE-US201715684

PATIENT
  Age: 61 Year
  Sex: Female

DRUGS (3)
  1. HUMAN IMMUNOGLOBULIN G\HYALURONIDASE RECOMBINANT HUMAN [Suspect]
     Active Substance: HUMAN IMMUNOGLOBULIN G\HYALURONIDASE (HUMAN RECOMBINANT)
     Indication: Primary immunodeficiency syndrome
     Dosage: UNK
  2. CUVITRU [Suspect]
     Active Substance: HUMAN IMMUNOGLOBULIN G
     Indication: Hypogammaglobulinaemia
     Dosage: UNK
  3. CUVITRU [Suspect]
     Active Substance: HUMAN IMMUNOGLOBULIN G
     Indication: Primary immunodeficiency syndrome

REACTIONS (24)
  - Colitis [Unknown]
  - Pelvic fracture [Unknown]
  - Hip fracture [Unknown]
  - Fall [Unknown]
  - Blood pressure decreased [Unknown]
  - Thyroid neoplasm [Unknown]
  - Gastrointestinal disorder [Unknown]
  - Gait disturbance [Unknown]
  - Post procedural complication [Not Recovered/Not Resolved]
  - Emphysema [Unknown]
  - Influenza [Not Recovered/Not Resolved]
  - Hepatic cyst [Unknown]
  - Renal cyst [Unknown]
  - Ovarian cyst [Unknown]
  - Osteoporosis [Unknown]
  - Urinary tract infection [Unknown]
  - Weight gain poor [Unknown]
  - Foot fracture [Unknown]
  - Back injury [Unknown]
  - Pain in extremity [Unknown]
  - Malaise [Unknown]
  - Fatigue [Unknown]
  - Vomiting [Unknown]
  - Peripheral swelling [Unknown]

NARRATIVE: CASE EVENT DATE: 20240424
